FAERS Safety Report 15458626 (Version 2)
Quarter: 2018Q4

REPORT INFORMATION
  Report Type: Spontaneous
  Country: ES (occurrence: ES)
  Receive Date: 20181003
  Receipt Date: 20181128
  Transmission Date: 20190204
  Serious: Yes (Death, Other)
  Sender: FDA-Public Use
  Company Number: ES-ACCORD-072875

PATIENT
  Age: 42 Year
  Sex: Female

DRUGS (9)
  1. FUROSEMIDE. [Suspect]
     Active Substance: FUROSEMIDE
     Indication: PULMONARY ARTERIAL HYPERTENSION
  2. TREPROSTINIL/TREPROSTINIL SODIUM [Suspect]
     Active Substance: TREPROSTINIL
     Indication: PULMONARY ARTERIAL HYPERTENSION
     Dosage: 22 NG/KG/MIN
     Route: 042
     Dates: start: 200702, end: 200703
  3. DIGOXIN. [Suspect]
     Active Substance: DIGOXIN
     Indication: PULMONARY ARTERIAL HYPERTENSION
  4. ACENOCOUMAROL [Suspect]
     Active Substance: ACENOCOUMAROL
     Indication: PULMONARY ARTERIAL HYPERTENSION
  5. EPOPROSTENOL/EPOPROSTENOL SODIUM [Suspect]
     Active Substance: EPOPROSTENOL SODIUM
     Indication: PULMONARY ARTERIAL HYPERTENSION
     Dosage: 52 NG/KG/MIN
  6. BOSENTAN. [Suspect]
     Active Substance: BOSENTAN
     Indication: PULMONARY ARTERIAL HYPERTENSION
  7. ILOPROST/ILOPROST TROMETAMINE/ILOPROST TROMETAMOL [Suspect]
     Active Substance: ILOPROST TROMETHAMINE
     Indication: PULMONARY ARTERIAL HYPERTENSION
     Route: 055
     Dates: start: 2007, end: 2007
  8. SILDENAFIL. [Suspect]
     Active Substance: SILDENAFIL
     Indication: PULMONARY ARTERIAL HYPERTENSION
     Dosage: 300 MG, QD
     Dates: start: 2007, end: 2007
  9. IMATINIB/IMATINIB MESILATE [Suspect]
     Active Substance: IMATINIB
     Indication: PULMONARY ARTERIAL HYPERTENSION
     Dosage: 200 MG, QD
     Dates: start: 2007, end: 2007

REACTIONS (3)
  - Right ventricular failure [Fatal]
  - Condition aggravated [Unknown]
  - Drug ineffective [Unknown]

NARRATIVE: CASE EVENT DATE: 2007
